FAERS Safety Report 6348975-8 (Version None)
Quarter: 2009Q3

REPORT INFORMATION
  Report Type: 
  Country: None (occurrence: None)
  Receive Date: 20090908
  Receipt Date: 20090826
  Transmission Date: 20100115
  Serious: Yes (Death, Other)
  Sender: FDA-Public Use
  Company Number: MC200900144

PATIENT

DRUGS (3)
  1. ANGIOMAX, ANGIOX (BIVALIRUDIN) INJECTION [Suspect]
     Indication: PERCUTANEOUS CORONARY INTERVENTION
  2. CLOPIDOGREL (CLOPIDOGREL (CLOPIDOGREL SULFATE) [Suspect]
     Indication: ANTICOAGULANT THERAPY
     Dosage: 300 MG OR GREATER, LOADING DOSE, ORAL
     Route: 048
  3. ASPIRIN [Suspect]
     Indication: ANTICOAGULANT THERAPY
     Dosage: 325 MG, SINGLE LOADING DOSE, ORAL
     Route: 048

REACTIONS (4)
  - CARDIAC DISORDER [None]
  - CORONARY REVASCULARISATION [None]
  - HAEMORRHAGE [None]
  - MYOCARDIAL INFARCTION [None]
